FAERS Safety Report 8079073-3 (Version None)
Quarter: 2012Q1

REPORT INFORMATION
  Report Type: 
  Country: None (occurrence: None)
  Receive Date: 20120128
  Receipt Date: 20110817
  Transmission Date: 20120608
  Serious: No
  Sender: FDA-Public Use
  Company Number: US-ABBOTT-11P-163-0847684-00

PATIENT
  Sex: Female

DRUGS (11)
  1. HUMIRA [Suspect]
     Indication: PSORIASIS
     Dates: end: 20101001
  2. CYMBALTA [Concomitant]
     Indication: DEPRESSION
     Route: 048
  3. ONE A DAY [Concomitant]
     Indication: VITAMIN SUPPLEMENTATION
     Route: 048
  4. PREDNISONE TAB [Concomitant]
     Indication: ARTHRITIS
     Route: 048
  5. UNKNOWN OINTMENTS [Concomitant]
     Indication: PSORIASIS
     Dosage: APPLIED TWICE A DAY
  6. PRILOSEC [Concomitant]
     Indication: IRRITABLE BOWEL SYNDROME
  7. CELEBREX [Concomitant]
     Indication: ARTHRALGIA
     Route: 048
  8. METHOTREXATE [Concomitant]
     Indication: PRODUCT USED FOR UNKNOWN INDICATION
     Dosage: EVERY WEEK OR EVERY OTHER WEEK
  9. B100 [Concomitant]
     Indication: VITAMIN SUPPLEMENTATION
     Route: 048
  10. HCTZ/MOEXIPRIL [Concomitant]
     Indication: BLOOD PRESSURE
     Route: 048
  11. CYMBALTA [Concomitant]
     Indication: FIBROMYALGIA

REACTIONS (2)
  - PSORIASIS [None]
  - DRUG INEFFECTIVE [None]
